FAERS Safety Report 21734679 (Version 4)
Quarter: 2022Q4

REPORT INFORMATION
  Report Type: Spontaneous
  Country: US (occurrence: US)
  Receive Date: 20221215
  Receipt Date: 20221227
  Transmission Date: 20230112
  Serious: No
  Sender: FDA-Public Use
  Company Number: US-PFIZER INC-2021894464

PATIENT
  Age: 77 Year
  Sex: Female
  Weight: 111.13 kg

DRUGS (1)
  1. ARTHROTEC [Suspect]
     Active Substance: DICLOFENAC SODIUM\MISOPROSTOL
     Indication: Arthritis
     Dosage: 1 DF, 2X/DAY, AS NEEDED
     Route: 048
     Dates: end: 2022

REACTIONS (3)
  - Off label use [Unknown]
  - Gait inability [Unknown]
  - Withdrawal syndrome [Not Recovered/Not Resolved]

NARRATIVE: CASE EVENT DATE: 20220101
